FAERS Safety Report 6043392-2 (Version None)
Quarter: 2009Q1

REPORT INFORMATION
  Report Type: 
  Country: None (occurrence: None)
  Receive Date: 20090115
  Receipt Date: 20090109
  Transmission Date: 20090719
  Serious: Yes (Death, Hospitalization)
  Sender: FDA-Public Use
  Company Number: CERZ-1000386

PATIENT
  Age: 79 Year
  Sex: Female

DRUGS (1)
  1. CEREZYME [Suspect]
     Indication: GAUCHER'S DISEASE
     Dosage: 3400 U, Q2W, INTRAVENOUS
     Route: 042
     Dates: start: 19990731

REACTIONS (4)
  - BREAST CANCER FEMALE [None]
  - FOOT FRACTURE [None]
  - JOINT INJURY [None]
  - METASTASES TO BONE [None]
